FAERS Safety Report 14657027 (Version 1)
Quarter: 2018Q1

REPORT INFORMATION
  Report Type: Spontaneous
  Country: US (occurrence: US)
  Receive Date: 20180319
  Receipt Date: 20180319
  Transmission Date: 20180509
  Serious: Yes (Life-Threatening, Hospitalization)
  Sender: FDA-Public Use
  Company Number: US-SA-2018SA069767

PATIENT
  Age: 66 Year
  Sex: Male
  Weight: 84.1 kg

DRUGS (21)
  1. XANAX [Suspect]
     Active Substance: ALPRAZOLAM
     Indication: MENTAL DISORDER
     Route: 048
     Dates: start: 201301, end: 201710
  2. XANAX [Suspect]
     Active Substance: ALPRAZOLAM
     Indication: MENTAL DISORDER
     Route: 048
     Dates: start: 201710
  3. ZOLPIDEM [Concomitant]
     Active Substance: ZOLPIDEM\ZOLPIDEM TARTRATE
  4. WELCHOL [Concomitant]
     Active Substance: COLESEVELAM HYDROCHLORIDE
  5. RAMIPRIL. [Concomitant]
     Active Substance: RAMIPRIL
  6. VITAMIN D3 [Concomitant]
     Active Substance: CHOLECALCIFEROL
  7. AMBIEN [Suspect]
     Active Substance: ZOLPIDEM TARTRATE
     Indication: MENTAL DISORDER
     Dosage: STOP DATE ON OCT-2017
     Route: 048
     Dates: start: 20171017
  8. AMBIEN [Suspect]
     Active Substance: ZOLPIDEM TARTRATE
     Indication: MENTAL DISORDER
     Dosage: STOP DATE ON OCT-2017
     Route: 048
     Dates: start: 20171017
  9. XANAX [Suspect]
     Active Substance: ALPRAZOLAM
     Indication: MENTAL DISORDER
     Route: 048
     Dates: start: 201710, end: 201710
  10. BUPROPION. [Concomitant]
     Active Substance: BUPROPION
  11. UBIDECARENONE [Concomitant]
     Active Substance: UBIDECARENONE
  12. VITAMIN B COMPLEX [Concomitant]
     Active Substance: CYANOCOBALAMIN\DEXPANTHENOL\NIACINAMIDE\PYRIDOXINE HYDROCHLORIDE\RIBOFLAVIN 5^-PHOSPHATE SODIUM\THIAMINE HYDROCHLORIDE\VITAMIN B COMPLEX
  13. LAMOTRIGINE. [Concomitant]
     Active Substance: LAMOTRIGINE
  14. AMBIEN [Suspect]
     Active Substance: ZOLPIDEM TARTRATE
     Indication: MENTAL DISORDER
     Dosage: STOP DATE ON OCT-2017
     Route: 048
     Dates: start: 201710
  15. SALBUTAMOL [Concomitant]
     Active Substance: ALBUTEROL
  16. BRILINTA [Concomitant]
     Active Substance: TICAGRELOR
  17. PLAVIX [Concomitant]
     Active Substance: CLOPIDOGREL BISULFATE
  18. CRESTOR [Concomitant]
     Active Substance: ROSUVASTATIN CALCIUM
  19. ZETIA [Concomitant]
     Active Substance: EZETIMIBE
  20. CANDESARTAN. [Concomitant]
     Active Substance: CANDESARTAN
  21. ESCITALOPRAM [Concomitant]
     Active Substance: ESCITALOPRAM OXALATE

REACTIONS (6)
  - Streptococcal bacteraemia [Unknown]
  - Hypertension [Unknown]
  - Metabolic acidosis [Unknown]
  - Intentional overdose [Unknown]
  - Metabolic encephalopathy [Unknown]
  - Suicide attempt [Unknown]
